FAERS Safety Report 26011886 (Version 1)
Quarter: 2025Q4

REPORT INFORMATION
  Report Type: Report from Study
  Country: US (occurrence: US)
  Receive Date: 20251107
  Receipt Date: 20251107
  Transmission Date: 20260117
  Serious: Yes (Other)
  Sender: ALEXION PHARMACEUTICALS
  Company Number: US-AstraZeneca-CH-00984637A

PATIENT
  Age: 85 Year
  Sex: Male
  Weight: 87.9 kg

DRUGS (2)
  1. ACALABRUTINIB [Suspect]
     Active Substance: ACALABRUTINIB
     Indication: Mantle cell lymphoma
     Dosage: 100 MILLIGRAM, Q12H
  2. MEMANTINE [Concomitant]
     Active Substance: MEMANTINE
     Route: 065

REACTIONS (1)
  - Dementia Alzheimer^s type [Unknown]
